FAERS Safety Report 6358433-2 (Version None)
Quarter: 2009Q3

REPORT INFORMATION
  Report Type: 
  Country: None (occurrence: None)
  Receive Date: 20090911
  Receipt Date: 20090901
  Transmission Date: 20100115
  Serious: Yes (Hospitalization)
  Sender: FDA-Public Use
  Company Number: JP-000779

PATIENT
  Age: 34 Year
  Sex: Female

DRUGS (3)
  1. MENOTROPINS [Suspect]
     Indication: OVULATION INDUCTION
     Dosage: 150 IU INTRAMUSCULAR
     Route: 030
     Dates: start: 20090207, end: 20090213
  2. CLOMIPHENE CITRATE [Suspect]
     Indication: OVULATION INDUCTION
     Dosage: 100 MG
     Dates: start: 20090209, end: 20090213
  3. CHORIONIC GONADOTROPIN [Suspect]
     Indication: OVULATION INDUCTION
     Dosage: 5000 IU INTRAMUSCULAR

REACTIONS (9)
  - ANAEMIA [None]
  - ASCITES [None]
  - ECTOPIC PREGNANCY [None]
  - FALLOPIAN TUBE PERFORATION [None]
  - INTRA-ABDOMINAL HAEMORRHAGE [None]
  - MULTIPLE PREGNANCY [None]
  - OVARIAN HYPERSTIMULATION SYNDROME [None]
  - PLATELET COUNT INCREASED [None]
  - PLEURAL EFFUSION [None]
